FAERS Safety Report 9024223 (Version 2)
Quarter: 2013Q1

REPORT INFORMATION
  Report Type: Report from Study
  Country: GB (occurrence: GB)
  Receive Date: 20130122
  Receipt Date: 20130215
  Transmission Date: 20140127
  Serious: Yes (Hospitalization)
  Sender: FDA-Public Use
  Company Number: GB-009507513-1301GBR006295

PATIENT
  Age: 51 Year
  Sex: Female
  Weight: 64.9 kg

DRUGS (12)
  1. TEMOZOLOMIDE [Suspect]
     Indication: GLIOBLASTOMA
     Dosage: 150 MG/M2, ADJUVANT
     Route: 048
     Dates: end: 20121224
  2. TEMOZOLOMIDE [Suspect]
     Dosage: 150 MG/M2, ADJUVANT
     Route: 048
     Dates: start: 20121126, end: 20121130
  3. UNSPECIFIED INGREDIENTS [Suspect]
     Indication: GLIOBLASTOMA
     Dosage: 4.96 MG
     Route: 023
     Dates: start: 20120723, end: 20120723
  4. UNSPECIFIED DRUG [Suspect]
     Dosage: 4.96 MG
     Route: 023
     Dates: start: 20121217, end: 20121217
  5. GRANULOCYTE-MACROPHAGE COLONY-STIMULATING FACTOR [Suspect]
     Indication: GLIOBLASTOMA
     Dosage: 75 MICROGRAM, ONCE
     Route: 023
     Dates: start: 20120723, end: 20120723
  6. GRANULOCYTE-MACROPHAGE COLONY-STIMULATING FACTOR [Suspect]
     Dosage: 75 MICROGRAM, ONCE
     Route: 023
     Dates: start: 20121217, end: 20121217
  7. ALBUTEROL [Concomitant]
     Indication: COUGH
     Dosage: 5 MG, UNK
     Route: 048
     Dates: start: 20121226
  8. ATROVENT [Concomitant]
     Indication: COUGH
     Dosage: UNK
     Route: 048
     Dates: start: 20121226
  9. ACETAMINOPHEN [Concomitant]
     Indication: CHEST PAIN
     Dosage: 1 G, UNK
     Route: 048
     Dates: start: 20121226
  10. CODEINE [Concomitant]
     Indication: CHEST PAIN
     Dosage: 60 MG, QD
     Route: 048
     Dates: start: 20121226
  11. AMOXICILLIN (+) CLAVULANATE POTASSIUM [Concomitant]
     Indication: URINARY TRACT INFECTION
     Dosage: 625 MG, QD
     Route: 048
     Dates: start: 20121228
  12. CLARITHROMYCIN [Concomitant]
     Indication: URINARY TRACT INFECTION
     Dosage: 500 MG, QD
     Route: 048
     Dates: start: 20121228

REACTIONS (2)
  - Pneumonia [Recovered/Resolved]
  - Neutropenia [Recovered/Resolved]
